FAERS Safety Report 7867497-6 (Version None)
Quarter: 2011Q4

REPORT INFORMATION
  Report Type: 
  Country: None (occurrence: None)
  Receive Date: 20111028
  Receipt Date: 20111017
  Transmission Date: 20120403
  Serious: Yes (Other)
  Sender: FDA-Public Use
  Company Number: PHHY2011CA72697

PATIENT
  Sex: Female

DRUGS (4)
  1. ATACAND [Concomitant]
  2. MACROBID [Concomitant]
  3. CLOZARIL [Suspect]
     Indication: SCHIZOPHRENIA
     Dosage: 250 MG
     Route: 048
     Dates: start: 20110502
  4. TEGRETOL [Suspect]
     Indication: EPILEPSY

REACTIONS (7)
  - VEIN PAIN [None]
  - URINARY INCONTINENCE [None]
  - ATONIC URINARY BLADDER [None]
  - PAIN [None]
  - URINARY BLADDER ATROPHY [None]
  - CYSTITIS [None]
  - WHITE BLOOD CELL COUNT DECREASED [None]
